FAERS Safety Report 25552983 (Version 1)
Quarter: 2025Q3

REPORT INFORMATION
  Report Type: Spontaneous
  Country: US (occurrence: US)
  Receive Date: 20250715
  Receipt Date: 20250715
  Transmission Date: 20251020
  Serious: No
  Sender: GE HEALTHCARE
  Company Number: US-GE HEALTHCARE-2025CSU008874

PATIENT
  Age: 74 Year
  Sex: Female
  Weight: 114 kg

DRUGS (1)
  1. VIZAMYL [Suspect]
     Active Substance: FLUTEMETAMOL F-18
     Indication: Positron emission tomogram
     Route: 042
     Dates: start: 20250703

REACTIONS (3)
  - Pain in extremity [Recovered/Resolved]
  - Dizziness [Recovered/Resolved]
  - Headache [Recovered/Resolved]

NARRATIVE: CASE EVENT DATE: 20250703
